FAERS Safety Report 22938355 (Version 2)
Quarter: 2024Q2

REPORT INFORMATION
  Report Type: Report from Study
  Country: CA (occurrence: None)
  Receive Date: 20230913
  Receipt Date: 20240524
  Transmission Date: 20240716
  Serious: Yes (Other)
  Sender: FDA-Public Use
  Company Number: CA-Orion Corporation ORION PHARMA-TREX2019-4384

PATIENT
  Age: 73 Year
  Sex: Female

DRUGS (20)
  1. METHOTREXATE [Suspect]
     Active Substance: METHOTREXATE
     Indication: Product used for unknown indication
  2. RITUXAN [Suspect]
     Active Substance: RITUXIMAB
     Indication: Rheumatoid arthritis
  3. RITUXIMAB [Suspect]
     Active Substance: RITUXIMAB
     Indication: Rheumatoid arthritis
  4. RITUXIMAB [Suspect]
     Active Substance: RITUXIMAB
  5. RITUXIMAB [Suspect]
     Active Substance: RITUXIMAB
  6. RITUXIMAB [Suspect]
     Active Substance: RITUXIMAB
  7. RITUXIMAB [Suspect]
     Active Substance: RITUXIMAB
  8. ACTONEL [Concomitant]
     Active Substance: RISEDRONATE SODIUM
  9. DESOXIMETASONE [Concomitant]
     Active Substance: DESOXIMETASONE
  10. DICLOFENAC [Concomitant]
     Active Substance: DICLOFENAC
  11. IMURAN [Concomitant]
     Active Substance: AZATHIOPRINE
  12. LYRICA [Concomitant]
     Active Substance: PREGABALIN
  13. ROSUVASTATIN CALCIUM [Concomitant]
     Active Substance: ROSUVASTATIN CALCIUM
  14. ACETAMINOPHEN [Concomitant]
     Active Substance: ACETAMINOPHEN
  15. AZATHIOPRINE [Concomitant]
     Active Substance: AZATHIOPRINE
  16. BENADRYL [Concomitant]
     Active Substance: DIPHENHYDRAMINE HYDROCHLORIDE
  17. METHYLPREDNISOLONE [Concomitant]
     Active Substance: METHYLPREDNISOLONE
  18. PROLIA [Concomitant]
     Active Substance: DENOSUMAB
  19. RISEDRONATE SODIUM [Concomitant]
     Active Substance: RISEDRONATE SODIUM
  20. CALCIUM [Concomitant]
     Active Substance: CALCIUM

REACTIONS (4)
  - Pneumonia [Recovered/Resolved]
  - Abdominal pain upper [Recovered/Resolved]
  - Nasopharyngitis [Recovered/Resolved]
  - Weight decreased [Recovered/Resolved]
